FAERS Safety Report 23849426 (Version 2)
Quarter: 2024Q2

REPORT INFORMATION
  Report Type: Spontaneous
  Country: CN (occurrence: CN)
  Receive Date: 20240513
  Receipt Date: 20240516
  Transmission Date: 20240716
  Serious: Yes (Hospitalization, Other)
  Sender: FDA-Public Use
  Company Number: CN-PFIZER INC-PV202400061426

PATIENT
  Age: 22 Year
  Sex: Male

DRUGS (1)
  1. METHOTREXATE SODIUM [Suspect]
     Active Substance: METHOTREXATE SODIUM
     Indication: Acute lymphocytic leukaemia
     Dosage: 6G D1, D14
     Route: 041
     Dates: start: 20240417, end: 20240417

REACTIONS (2)
  - Renal impairment [Recovering/Resolving]
  - Urine output decreased [Recovering/Resolving]

NARRATIVE: CASE EVENT DATE: 20240417
